FAERS Safety Report 4367916-6 (Version None)
Quarter: 2004Q2

REPORT INFORMATION
  Report Type: 
  Country: None (occurrence: None)
  Receive Date: 20040527
  Receipt Date: 20040428
  Transmission Date: 20050107
  Serious: Yes (Other)
  Sender: FDA-Public Use
  Company Number: 234660

PATIENT
  Age: 63 Year
  Sex: Male

DRUGS (11)
  1. NOVOLOG MIX 70/30 [Suspect]
     Indication: INSULIN-REQUIRING TYPE II DIABETES MELLITUS
     Dosage: 12 IU, BID, SUBCUTANEOUS
     Route: 058
     Dates: start: 20030401, end: 20031201
  2. NOVOLOG MIX 70/30 [Suspect]
     Dosage: 12 IU, BID, SUBCUTANEOUS
     Route: 058
     Dates: start: 20031223, end: 20040107
  3. NOVOLOG MIX 70/30 [Suspect]
     Dosage: 12 IU, BID, SUBCUTANEOUS
     Route: 058
  4. LOTENSIN [Concomitant]
  5. BD ULTRAFINE NEEDLES [Concomitant]
  6. HYDROCHLOROTHIAZIDE [Concomitant]
  7. PLAVIX [Concomitant]
  8. ASPIRIN [Concomitant]
  9. ZOLOFT [Concomitant]
  10. ZOCOR [Concomitant]
  11. GLYBURIDE [Concomitant]

REACTIONS (5)
  - BURNING SENSATION [None]
  - DYSPNOEA [None]
  - PRURITUS GENERALISED [None]
  - RASH GENERALISED [None]
  - SWELLING [None]
